FAERS Safety Report 8193195-8 (Version None)
Quarter: 2012Q1

REPORT INFORMATION
  Report Type: 
  Country: None (occurrence: None)
  Receive Date: 20120308
  Receipt Date: 20120229
  Transmission Date: 20120608
  Serious: Yes (Hospitalization)
  Sender: FDA-Public Use
  Company Number: PL-ASTELLAS-2012US000024

PATIENT
  Sex: Female
  Weight: 41 kg

DRUGS (2)
  1. TACROLIMUS [Suspect]
     Dosage: 0.03 %, QD TWICE WEEKLY
     Route: 061
     Dates: start: 20120127
  2. TACROLIMUS [Suspect]
     Indication: DERMATITIS ATOPIC
     Dosage: 0.03 %, WEEKLY
     Route: 061
     Dates: start: 20090330

REACTIONS (1)
  - GASTRITIS [None]
